FAERS Safety Report 6538757-6 (Version None)
Quarter: 2010Q1

REPORT INFORMATION
  Report Type: 
  Country: None (occurrence: None)
  Receive Date: 20100114
  Receipt Date: 20100114
  Transmission Date: 20100710
  Serious: Yes (Other)
  Sender: FDA-Public Use
  Company Number: None

PATIENT
  Age: 14 Year
  Sex: Female
  Weight: 61.2356 kg

DRUGS (1)
  1. SINGULAIR [Suspect]
     Indication: ASTHMA
     Dosage: 5 MG CHEWABLE TA DAILY PO
     Route: 048
     Dates: start: 20040810, end: 20091229

REACTIONS (4)
  - ABNORMAL BEHAVIOUR [None]
  - AFFECT LABILITY [None]
  - ANGER [None]
  - ANXIETY [None]
